FAERS Safety Report 5264988-1 (Version None)
Quarter: 2007Q1

REPORT INFORMATION
  Report Type: 
  Country: None (occurrence: None)
  Receive Date: 20070314
  Receipt Date: 20070302
  Transmission Date: 20070707
  Serious: Yes (Life-Threatening)
  Sender: FDA-Public Use
  Company Number: JP-ROCHE-485967

PATIENT
  Age: 14 Year

DRUGS (1)
  1. TAMIFLU [Suspect]
     Route: 048
     Dates: start: 20070218, end: 20070219

REACTIONS (1)
  - NIGHTMARE [None]
